FAERS Safety Report 5104939-3 (Version None)
Quarter: 2006Q3

REPORT INFORMATION
  Report Type: 
  Country: None (occurrence: None)
  Receive Date: 20060914
  Receipt Date: 20060824
  Transmission Date: 20061208
  Serious: Yes (Hospitalization)
  Sender: FDA-Public Use
  Company Number: FR-SANOFI-SYNTHELABO-A02200602164

PATIENT
  Age: 68 Year
  Sex: Female
  Weight: 82 kg

DRUGS (11)
  1. PLACEBO NOS [Concomitant]
     Indication: DRUG USE FOR UNKNOWN INDICATION
     Dosage: UNK
     Route: 065
  2. PENTOCIR [Concomitant]
     Indication: DRUG USE FOR UNKNOWN INDICATION
     Dosage: UNK
     Route: 065
  3. VITAMIN B1 B6 [Concomitant]
     Indication: DRUG USE FOR UNKNOWN INDICATION
     Route: 065
  4. ALDACTONE [Suspect]
     Indication: DRUG USE FOR UNKNOWN INDICATION
     Route: 048
     Dates: end: 20060705
  5. DUPHALAC [Suspect]
     Indication: HEPATIC ENCEPHALOPATHY
     Route: 048
     Dates: end: 20060101
  6. DUPHALAC [Suspect]
     Indication: DRUG USE FOR UNKNOWN INDICATION
     Route: 048
     Dates: end: 20060101
  7. DUPHALAC [Suspect]
     Dosage: MORE THAN 30 G DAILY NOS
     Route: 048
     Dates: start: 20060101
  8. DUPHALAC [Suspect]
     Dosage: MORE THAN 30 G DAILY NOS
     Route: 048
     Dates: start: 20060101
  9. DI ANTALVIC [Suspect]
     Indication: BACK PAIN
     Dosage: IN 4 INTAKES : DEXTROPROPOXYPHENE 120 MG + PARACETAMOL: 1600 MG
     Route: 048
     Dates: start: 20060629, end: 20060703
  10. STILNOX [Suspect]
     Indication: DRUG USE FOR UNKNOWN INDICATION
     Route: 048
  11. NEXIUM [Suspect]
     Indication: DRUG USE FOR UNKNOWN INDICATION
     Route: 048

REACTIONS (11)
  - ASTERIXIS [None]
  - ASTHENIA [None]
  - BALANCE DISORDER [None]
  - BLOOD BILIRUBIN INCREASED [None]
  - BLOOD CREATINE INCREASED [None]
  - BLOOD PRESSURE SYSTOLIC INCREASED [None]
  - HEPATIC ENCEPHALOPATHY [None]
  - HEPATOMEGALY [None]
  - JAUNDICE [None]
  - OEDEMA PERIPHERAL [None]
  - SOMNOLENCE [None]
